FAERS Safety Report 4713433-0 (Version None)
Quarter: 2005Q3

REPORT INFORMATION
  Report Type: 
  Country: None (occurrence: None)
  Receive Date: 20050713
  Receipt Date: 20040303
  Transmission Date: 20060218
  Serious: Yes (Hospitalization)
  Sender: FDA-Public Use
  Company Number: JP-ROCHE-360738

PATIENT
  Age: 8 Year
  Sex: Female

DRUGS (1)
  1. TAMIFLU [Suspect]
     Route: 048
     Dates: start: 20040126, end: 20040128

REACTIONS (4)
  - DYSPHAGIA [None]
  - EXPRESSIVE LANGUAGE DISORDER [None]
  - MENTAL DISORDER [None]
  - SALIVARY HYPERSECRETION [None]
